FAERS Safety Report 5159007-1 (Version None)
Quarter: 2006Q4

REPORT INFORMATION
  Report Type: 
  Country: None (occurrence: None)
  Receive Date: 20061114
  Receipt Date: 20061102
  Transmission Date: 20070319
  Serious: Yes (Hospitalization)
  Sender: FDA-Public Use
  Company Number: B0442993A

PATIENT
  Age: 50 Year
  Sex: Female

DRUGS (4)
  1. LITHIUM SALT (FORMULATION UNKNOWN) (GENERIC) (LITHIUM SALT) [Suspect]
     Indication: BIPOLAR DISORDER
  2. MIANSERIN HYDROCHLORIDE (MIANSERIN HYDROCHLORIDE) [Suspect]
  3. BIPERIDEN HYDROCHLORIDE TAB [Suspect]
  4. ALPRAZOLAM [Suspect]

REACTIONS (10)
  - AGITATION [None]
  - BLOOD CULTURE POSITIVE [None]
  - DRUG TOXICITY [None]
  - GRAND MAL CONVULSION [None]
  - HAEMODIALYSIS [None]
  - MULTIPLE DRUG OVERDOSE INTENTIONAL [None]
  - MYDRIASIS [None]
  - PSEUDOMONAS INFECTION [None]
  - STAPHYLOCOCCAL INFECTION [None]
  - SUICIDE ATTEMPT [None]
